FAERS Safety Report 10436916 (Version 4)
Quarter: 2015Q1

REPORT INFORMATION
  Report Type: Spontaneous
  Country: JP (occurrence: JP)
  Receive Date: 20140908
  Receipt Date: 20150121
  Transmission Date: 20150720
  Serious: Yes (Life-Threatening, Hospitalization, Other)
  Sender: FDA-Public Use
  Company Number: JP-ASTRAZENECA-2014SE66371

PATIENT
  Age: 737 Month
  Sex: Female
  Weight: 47 kg

DRUGS (7)
  1. PLETAAL [Concomitant]
     Active Substance: CILOSTAZOL
  2. SEROQUEL [Suspect]
     Active Substance: QUETIAPINE FUMARATE
     Indication: SCHIZOPHRENIA
     Route: 048
     Dates: start: 20090625
  3. CONTOMIN [Concomitant]
     Active Substance: CHLORPROMAZINE
     Route: 048
  4. TRIHEXYPHENIDYL HYDROCHLORIDE. [Concomitant]
     Active Substance: TRIHEXYPHENIDYL HYDROCHLORIDE
     Indication: SCHIZOPHRENIA
     Route: 048
     Dates: start: 20140904
  5. CERCINE [Concomitant]
     Active Substance: DIAZEPAM
     Indication: SCHIZOPHRENIA
     Dates: start: 20060119
  6. LINTON [Suspect]
     Active Substance: HALOPERIDOL
     Indication: SCHIZOPHRENIA
     Route: 048
  7. BENZALIN [Concomitant]
     Active Substance: NITRAZEPAM
     Route: 048

REACTIONS (6)
  - Agranulocytosis [Recovered/Resolved]
  - Blood creatine phosphokinase increased [Unknown]
  - Pneumonia [Recovering/Resolving]
  - Blood urea decreased [Unknown]
  - Cerebral infarction [Recovered/Resolved]
  - Platelet count decreased [Unknown]

NARRATIVE: CASE EVENT DATE: 201201
